FAERS Safety Report 7715837-0 (Version None)
Quarter: 2011Q3

REPORT INFORMATION
  Report Type: 
  Country: None (occurrence: None)
  Receive Date: 20110829
  Receipt Date: 20110829
  Transmission Date: 20111222
  Serious: Yes (Life-Threatening, Hospitalization)
  Sender: FDA-Public Use
  Company Number: None

PATIENT
  Age: 68 Year
  Sex: Male
  Weight: 86.182 kg

DRUGS (2)
  1. HYDROMORPHONE HCL [Suspect]
     Indication: PAIN
     Dosage: HYDROMORPHONE
     Route: 041
     Dates: start: 20110723, end: 20110821
  2. HYDROMORPHONE HCL [Suspect]
     Indication: PANCREATIC CARCINOMA
     Dosage: HYDROMORPHONE
     Route: 041
     Dates: start: 20110723, end: 20110821

REACTIONS (3)
  - LOSS OF CONSCIOUSNESS [None]
  - OVERDOSE [None]
  - HEAD INJURY [None]
